FAERS Safety Report 18556144 (Version 1)
Quarter: 2020Q4

REPORT INFORMATION
  Report Type: Report from Study
  Country: None (occurrence: US)
  Receive Date: 20201128
  Receipt Date: 20201128
  Transmission Date: 20210114
  Serious: Yes (Hospitalization, Other)
  Sender: FDA-Public Use
  Company Number: US-ABBVIE-20K-163-3517903-00

PATIENT
  Age: 51 Year
  Sex: Female

DRUGS (8)
  1. VENCLEXTA [Suspect]
     Active Substance: VENETOCLAX
     Indication: ACUTE MYELOID LEUKAEMIA
     Route: 048
  2. XOSPATA [Suspect]
     Active Substance: GILTERITINIB
     Route: 048
     Dates: end: 202008
  3. VENCLEXTA [Suspect]
     Active Substance: VENETOCLAX
     Route: 048
     Dates: start: 202001
  4. XOSPATA [Suspect]
     Active Substance: GILTERITINIB
     Route: 048
  5. XOSPATA [Suspect]
     Active Substance: GILTERITINIB
     Indication: ACUTE MYELOID LEUKAEMIA (IN REMISSION)
     Route: 048
     Dates: start: 20190213, end: 20190313
  6. XOSPATA [Suspect]
     Active Substance: GILTERITINIB
     Route: 048
  7. XOSPATA [Suspect]
     Active Substance: GILTERITINIB
     Route: 048
  8. ABILIFY [Concomitant]
     Active Substance: ARIPIPRAZOLE
     Indication: PRODUCT USED FOR UNKNOWN INDICATION

REACTIONS (15)
  - Wound infection [Unknown]
  - Limb injury [Unknown]
  - Acute myeloid leukaemia recurrent [Unknown]
  - Weight increased [Unknown]
  - Lymphatic disorder [Unknown]
  - Malaise [Unknown]
  - Device occlusion [Unknown]
  - Dizziness [Unknown]
  - Asthenia [Unknown]
  - Blood count abnormal [Unknown]
  - Adverse drug reaction [Unknown]
  - Gait inability [Unknown]
  - Depression [Unknown]
  - Platelet count decreased [Unknown]
  - Fatigue [Unknown]

NARRATIVE: CASE EVENT DATE: 202008
